FAERS Safety Report 8295658-3 (Version None)
Quarter: 2012Q2

REPORT INFORMATION
  Report Type: 
  Country: None (occurrence: None)
  Receive Date: 20120416
  Receipt Date: 20120416
  Transmission Date: 20120825
  Serious: No
  Sender: FDA-Public Use
  Company Number: None

PATIENT
  Sex: Female

DRUGS (1)
  1. CHORIONIC GONADOTROPIN [Suspect]

REACTIONS (6)
  - ABDOMINAL PAIN UPPER [None]
  - DIZZINESS [None]
  - WEIGHT DECREASED [None]
  - HEADACHE [None]
  - ABDOMINAL DISTENSION [None]
  - WEIGHT INCREASED [None]
